FAERS Safety Report 6979291-9 (Version None)
Quarter: 2010Q3

REPORT INFORMATION
  Report Type: 
  Country: None (occurrence: None)
  Receive Date: 20100913
  Receipt Date: 20100830
  Transmission Date: 20110219
  Serious: Yes (Hospitalization, Other)
  Sender: FDA-Public Use
  Company Number: US-MYLANLABS-2010S1015780

PATIENT
  Age: 22 Year
  Sex: Male

DRUGS (4)
  1. PHENOBARBITAL [Suspect]
     Indication: CONVULSION
  2. CARBAMAZEPINE [Suspect]
     Indication: CONVULSION
  3. VALPROIC ACID [Suspect]
     Indication: CONVULSION
  4. ETHOSUXIMIDE [Suspect]
     Indication: CONVULSION

REACTIONS (1)
  - HEPATIC ADENOMA [None]
